FAERS Safety Report 6970726-4 (Version None)
Quarter: 2010Q3

REPORT INFORMATION
  Report Type: 
  Country: None (occurrence: None)
  Receive Date: 20100908
  Receipt Date: 20100830
  Transmission Date: 20110219
  Serious: Yes (Hospitalization)
  Sender: FDA-Public Use
  Company Number: US-ROCHE-719834

PATIENT
  Sex: Female
  Weight: 79.9 kg

DRUGS (35)
  1. TOCILIZUMAB [Suspect]
     Indication: RHEUMATOID ARTHRITIS
     Dosage: TEMPORARILY INTERRUPTED
     Route: 042
     Dates: start: 20070117, end: 20090211
  2. TOCILIZUMAB [Suspect]
     Dosage: TEMPORARILY INTERRUPTED, ROUTE: PARENTERAL, FORM: INFUSION, LAST DOSE PRIOR TO SAE: 28 JULY 2010
     Route: 042
     Dates: start: 20090408, end: 20100805
  3. PLACEBO [Suspect]
     Indication: RHEUMATOID ARTHRITIS
     Dosage: THE PATIENT WAS ON WA18063 PROTOCOL PREVIOUSLY AND RECEIVED PLACEBO DMARD
     Route: 042
  4. METHOTREXATE [Concomitant]
     Dates: start: 20070224
  5. METHOTREXATE [Concomitant]
     Dates: start: 20090401
  6. FOLIC ACID [Concomitant]
     Dates: start: 20011001
  7. PREDNISONE [Concomitant]
     Dates: start: 20061207
  8. PREDNISONE [Concomitant]
     Dates: start: 20070224
  9. METFORMIN [Concomitant]
     Dates: start: 20060228
  10. ACTOS [Concomitant]
     Dates: start: 20060316, end: 20070427
  11. SOTALOL [Concomitant]
     Dates: start: 20020701
  12. SOTALOL [Concomitant]
     Dates: start: 20070428
  13. ZOCOR [Concomitant]
     Dates: start: 20060518
  14. OMEPRAZOLE [Concomitant]
     Dates: start: 20070405
  15. LEVOTHYROXINE [Concomitant]
     Dates: start: 20020101
  16. FOSAMAX [Concomitant]
     Dates: start: 20011001
  17. TIZANIDINE HCL [Concomitant]
     Dates: start: 20010712
  18. FENTANYL-75 [Concomitant]
     Dates: start: 20051101
  19. FENTANYL-75 [Concomitant]
     Dosage: FREQUENCY REPORTED AS 75MCG/72HRS.
     Dates: start: 20080309
  20. ASPIRIN [Concomitant]
     Dates: start: 20021111
  21. CALCIUM [Concomitant]
     Dates: start: 20060401
  22. IRON [Concomitant]
     Dates: start: 20060201
  23. VITAMIN B-12 [Concomitant]
     Dates: start: 20060101
  24. SENNA-C PLUS [Concomitant]
     Dates: start: 20060201
  25. PAROXETINE HCL [Concomitant]
     Dates: start: 20060826
  26. VICODIN [Concomitant]
     Dates: start: 20030301
  27. TRAZODONE HCL [Concomitant]
     Dates: start: 20070227
  28. CARISOPRODOL [Concomitant]
     Dates: start: 20070227
  29. LISINOPRIL [Concomitant]
     Dates: start: 20070428
  30. LASIX [Concomitant]
     Dates: start: 20080207
  31. ZYRTEC [Concomitant]
     Dates: start: 20080201
  32. MULTI-VITAMIN [Concomitant]
     Dates: start: 20080227
  33. OXISTAT [Concomitant]
     Dosage: FREQUENCY REPORTED AS 1 PRN (AS NEEDED).
     Dates: start: 20080327
  34. COLACE [Concomitant]
     Dates: start: 20080626
  35. RECLAST [Concomitant]
     Dates: start: 20090401

REACTIONS (1)
  - CHOLELITHIASIS [None]
